FAERS Safety Report 15251769 (Version 1)
Quarter: 2018Q3

REPORT INFORMATION
  Report Type: Spontaneous
  Country: US (occurrence: US)
  Receive Date: 20180717
  Receipt Date: 20180717
  Transmission Date: 20181010
  Serious: Yes (Death, Hospitalization)
  Sender: FDA-Public Use
  Company Number: None

PATIENT
  Age: 49 Year
  Sex: Female

DRUGS (1)
  1. REVLIMID [Suspect]
     Active Substance: LENALIDOMIDE
     Route: 048
     Dates: start: 20180525, end: 20180531

REACTIONS (5)
  - Throat lesion [None]
  - Drug hypersensitivity [None]
  - Blister [None]
  - Generalised erythema [None]
  - Tongue blistering [None]

NARRATIVE: CASE EVENT DATE: 20180529
